FAERS Safety Report 5806257-4 (Version None)
Quarter: 2008Q3

REPORT INFORMATION
  Report Type: 
  Country: None (occurrence: None)
  Receive Date: 20080709
  Receipt Date: 20080709
  Transmission Date: 20090109
  Serious: Yes (Disabling)
  Sender: FDA-Public Use
  Company Number: None

PATIENT
  Sex: Female

DRUGS (2)
  1. MARCAINE HYDROCHLORIDE W/ EPINEPHRINE [Suspect]
     Indication: ARTHROPATHY
     Dosage: 300 CC OVER 4 DAYS  014
     Dates: start: 20030822, end: 20030826
  2. PAINBUSTER I-FLOW PAIN PUMP [Concomitant]

REACTIONS (3)
  - BONE DISORDER [None]
  - BONE EROSION [None]
  - CHONDROPATHY [None]
